FAERS Safety Report 14920502 (Version 1)
Quarter: 2018Q2

REPORT INFORMATION
  Report Type: Spontaneous
  Country: US (occurrence: US)
  Receive Date: 20180502
  Receipt Date: 20180502
  Transmission Date: 20180711
  Serious: Yes (Other)
  Sender: FDA-Public Use
  Company Number: None

PATIENT
  Age: 21 Year
  Sex: Male

DRUGS (1)
  1. CIPROFLOXICIN [Suspect]
     Active Substance: CIPROFLOXACIN
     Route: 048
     Dates: start: 20180428, end: 20180429

REACTIONS (5)
  - Vision blurred [None]
  - Tinnitus [None]
  - Confusional state [None]
  - Condition aggravated [None]
  - Myalgia [None]

NARRATIVE: CASE EVENT DATE: 20180502
